FAERS Safety Report 6874516-2 (Version None)
Quarter: 2010Q3

REPORT INFORMATION
  Report Type: 
  Country: None (occurrence: None)
  Receive Date: 20100723
  Receipt Date: 20100723
  Transmission Date: 20110219
  Serious: Yes (Hospitalization)
  Sender: FDA-Public Use
  Company Number: None

PATIENT
  Sex: Female
  Weight: 46.8 kg

DRUGS (1)
  1. TARCEVA [Suspect]
     Dosage: 4800 MG
     Dates: end: 20100701

REACTIONS (5)
  - DECREASED APPETITE [None]
  - DEHYDRATION [None]
  - EASTERN COOPERATIVE ONCOLOGY GROUP PERFORMANCE STATUS [None]
  - FATIGUE [None]
  - NAUSEA [None]
